FAERS Safety Report 15484294 (Version 1)
Quarter: 2018Q4

REPORT INFORMATION
  Report Type: Spontaneous
  Country: IN (occurrence: IN)
  Receive Date: 20181010
  Receipt Date: 20181010
  Transmission Date: 20190205
  Serious: Yes (Hospitalization)
  Sender: FDA-Public Use
  Company Number: IN-MYLANLABS-2018M1075184

PATIENT
  Age: 18 Month
  Sex: Male

DRUGS (5)
  1. CICLOSPORIN [Suspect]
     Active Substance: CYCLOSPORINE
     Indication: NEPHROTIC SYNDROME
     Dosage: (6MG/KG/DAY)
  2. ZINC. [Concomitant]
     Active Substance: ZINC
     Indication: DIARRHOEA INFECTIOUS
     Route: 065
  3. SALBUTAMOL [Suspect]
     Active Substance: ALBUTEROL
     Indication: NEPHROTIC SYNDROME
     Route: 065
  4. ENALAPRIL [Concomitant]
     Active Substance: ENALAPRIL
     Indication: PRODUCT USED FOR UNKNOWN INDICATION
     Route: 048
  5. FUROSEMIDE. [Suspect]
     Active Substance: FUROSEMIDE
     Indication: NEPHROTIC SYNDROME
     Route: 065

REACTIONS (11)
  - Fractional excretion of sodium [Recovered/Resolved]
  - Electrocardiogram T wave amplitude decreased [Recovered/Resolved]
  - Hypotonia [Recovered/Resolved]
  - Hypocalcaemia [Recovered/Resolved]
  - Electrocardiogram U-wave abnormality [Recovered/Resolved]
  - Hypomagnesaemia [Recovered/Resolved]
  - Irritability [Recovered/Resolved]
  - Dropped head syndrome [Recovered/Resolved]
  - Paralysis [Recovered/Resolved]
  - Urine calcium/creatinine ratio increased [Recovered/Resolved]
  - Hypokalaemia [Recovered/Resolved]
